FAERS Safety Report 4338035-X (Version None)
Quarter: 2004Q2

REPORT INFORMATION
  Report Type: 
  Country: None (occurrence: None)
  Receive Date: 20040407
  Receipt Date: 20040318
  Transmission Date: 20050107
  Serious: Yes (Hospitalization)
  Sender: FDA-Public Use
  Company Number: B0327359A

PATIENT
  Age: 48 Year
  Sex: Male

DRUGS (5)
  1. PAXIL [Suspect]
     Indication: DEPRESSION
     Dosage: 20 MG/D
  2. ETIZOLAM [Concomitant]
  3. BROTIZOLAM [Concomitant]
  4. MIANSERIN [Concomitant]
  5. FLUNITRAZEPAM [Concomitant]

REACTIONS (2)
  - DRUG INTERACTION [None]
  - SEROTONIN SYNDROME [None]
